FAERS Safety Report 9403590 (Version 4)
Quarter: 2013Q3

REPORT INFORMATION
  Report Type: Spontaneous
  Country: AT (occurrence: AT)
  Receive Date: 20130717
  Receipt Date: 20130829
  Transmission Date: 20140515
  Serious: Yes (Life-Threatening, Hospitalization)
  Sender: FDA-Public Use
  Company Number: AT-ROCHE-1248331

PATIENT
  Age: 75 Year
  Sex: Male

DRUGS (8)
  1. ZELBORAF [Suspect]
     Indication: METASTATIC MALIGNANT MELANOMA
     Dosage: 4-0-4
     Route: 065
     Dates: start: 20130528, end: 20130627
  2. CANDESARTAN [Concomitant]
     Dosage: 0.5-0-0
     Route: 065
  3. CANDESARTAN [Concomitant]
     Dosage: 0-0-0.5
     Route: 065
  4. FINASTERID [Concomitant]
  5. TIMOPTIC [Concomitant]
  6. FENTANYL TRANSDERMAL [Concomitant]
     Dosage: 50 MCG/H 1/3 EVERY 3RD DAY
     Route: 065
  7. NOVALGIN [Concomitant]
     Dosage: AS REQURIED
     Route: 065
  8. MOLAXOLE [Concomitant]
     Dosage: AS REQURIED
     Route: 065

REACTIONS (3)
  - Pancreatitis necrotising [Unknown]
  - Cholecystitis [Unknown]
  - Renal failure acute [Unknown]
